FAERS Safety Report 8553399-9 (Version None)
Quarter: 2012Q3

REPORT INFORMATION
  Report Type: 
  Country: None (occurrence: None)
  Receive Date: 20120725
  Receipt Date: 20120725
  Transmission Date: 20120928
  Serious: Yes (Life-Threatening)
  Sender: FDA-Public Use
  Company Number: None

PATIENT
  Sex: Female

DRUGS (1)
  1. LIPODOX SUN PHARMA [Suspect]
     Indication: OVARIAN CANCER
     Dates: start: 20120716, end: 20120716

REACTIONS (3)
  - UNRESPONSIVE TO STIMULI [None]
  - RESUSCITATION [None]
  - PULSE ABSENT [None]
